FAERS Safety Report 9344268 (Version 1)
Quarter: 2013Q2

REPORT INFORMATION
  Report Type: Spontaneous
  Country: US (occurrence: None)
  Receive Date: 20130610
  Receipt Date: 20130610
  Transmission Date: 20140414
  Serious: Yes (Other)
  Sender: FDA-Public Use
  Company Number: 001542968A

PATIENT
  Sex: Female

DRUGS (5)
  1. PROACTIVE [Suspect]
     Indication: ACNE
     Dosage: ONCE DAILY DERMAL
     Dates: start: 20130517, end: 20130518
  2. PROACTIV [Suspect]
     Indication: ACNE
     Dosage: ONCE DAILY DERMAL
     Dates: start: 20130517, end: 20130518
  3. PROACTIV PLUS COMPLEXION PERFECTING HYDRATOR [Suspect]
     Indication: ACNE
     Dosage: ONCE DAILY DERMAL
  4. PROACTIV [Suspect]
     Indication: ACNE
     Dosage: ONCE DAILY DERMAL
     Dates: start: 20130517, end: 20130518
  5. ANTIBIOTICS [Concomitant]

REACTIONS (3)
  - Hypersensitivity [None]
  - Blister [None]
  - Erythema [None]
